FAERS Safety Report 24967732 (Version 1)
Quarter: 2025Q1

REPORT INFORMATION
  Report Type: Spontaneous
  Country: CH (occurrence: CH)
  Receive Date: 20250214
  Receipt Date: 20250214
  Transmission Date: 20250409
  Serious: Yes (Hospitalization, Other)
  Sender: CELLTRION
  Company Number: CH-CELLTRION INC.-2025CH004023

PATIENT

DRUGS (20)
  1. TRUXIMA [Suspect]
     Active Substance: RITUXIMAB-ABBS
     Indication: Encephalitis autoimmune
     Route: 040
     Dates: start: 20241106, end: 20241106
  2. TRUXIMA [Suspect]
     Active Substance: RITUXIMAB-ABBS
     Route: 040
     Dates: start: 20241120, end: 20241120
  3. CYCLOPHOSPHAMIDE [Suspect]
     Active Substance: CYCLOPHOSPHAMIDE
     Indication: Encephalitis autoimmune
     Route: 042
     Dates: start: 20241113, end: 20241113
  4. CYCLOPHOSPHAMIDE [Suspect]
     Active Substance: CYCLOPHOSPHAMIDE
     Route: 042
     Dates: start: 20241127, end: 20241127
  5. CYCLOPHOSPHAMIDE [Suspect]
     Active Substance: CYCLOPHOSPHAMIDE
     Route: 042
     Dates: start: 20241211, end: 20241211
  6. CYCLOPHOSPHAMIDE [Suspect]
     Active Substance: CYCLOPHOSPHAMIDE
     Route: 042
     Dates: start: 20250103, end: 20250103
  7. BRIVIACT [Suspect]
     Active Substance: BRIVARACETAM
     Indication: Product used for unknown indication
     Dates: start: 20241230, end: 20250116
  8. BRIVIACT [Suspect]
     Active Substance: BRIVARACETAM
     Dates: start: 20241230, end: 20250116
  9. BRIVIACT [Suspect]
     Active Substance: BRIVARACETAM
     Dates: start: 20250117
  10. KEPPRA [Suspect]
     Active Substance: LEVETIRACETAM
     Indication: Product used for unknown indication
     Dates: end: 20241230
  11. MESNA [Concomitant]
     Active Substance: MESNA
  12. ONDANSETRON [Concomitant]
     Active Substance: ONDANSETRON
     Dates: start: 20241113, end: 20241113
  13. ONDANSETRON [Concomitant]
     Active Substance: ONDANSETRON
     Dates: start: 20241127, end: 20241127
  14. ONDANSETRON [Concomitant]
     Active Substance: ONDANSETRON
     Dates: start: 20241211, end: 20241211
  15. ONDANSETRON [Concomitant]
     Active Substance: ONDANSETRON
     Dates: start: 20250103, end: 20250103
  16. ESLICARBAZEPINE ACETATE [Concomitant]
     Active Substance: ESLICARBAZEPINE ACETATE
  17. QUETIAPINE [Concomitant]
     Active Substance: QUETIAPINE
  18. MELATONIN [Concomitant]
     Active Substance: MELATONIN
  19. VALTREX [Concomitant]
     Active Substance: VALACYCLOVIR HYDROCHLORIDE
  20. BACTRIM [Concomitant]
     Active Substance: SULFAMETHOXAZOLE\TRIMETHOPRIM

REACTIONS (2)
  - Agranulocytosis [Recovered/Resolved]
  - Intentional product use issue [Unknown]

NARRATIVE: CASE EVENT DATE: 20250115
